FAERS Safety Report 20455726 (Version 2)
Quarter: 2022Q2

REPORT INFORMATION
  Report Type: Other
  Country: US (occurrence: None)
  Receive Date: 20220210
  Receipt Date: 20220502
  Transmission Date: 20220721
  Serious: Yes (Hospitalization)
  Sender: FDA-Public Use
  Company Number: US-ROCHE-3013950

PATIENT
  Sex: Female
  Weight: 125.76 kg

DRUGS (8)
  1. OCREVUS [Suspect]
     Active Substance: OCRELIZUMAB
     Indication: Multiple sclerosis relapse
     Dosage: ON DAY 1 AND DAY 15 THEN 600 EVERY 6 MONTHS
     Route: 042
  2. GABAPENTIN [Concomitant]
     Active Substance: GABAPENTIN
     Indication: Hypoaesthesia
     Route: 048
  3. GABAPENTIN [Concomitant]
     Active Substance: GABAPENTIN
     Indication: Paraesthesia
     Dosage: 2 600 MG TABLET
     Route: 048
  4. IRON [Concomitant]
     Active Substance: IRON
  5. PANTOPRAZOLE [Concomitant]
     Active Substance: PANTOPRAZOLE
     Route: 048
  6. MODAFINIL [Concomitant]
     Active Substance: MODAFINIL
     Route: 048
  7. BACLOFEN [Concomitant]
     Active Substance: BACLOFEN
     Indication: Pain
     Route: 048
  8. WARFARIN [Concomitant]
     Active Substance: WARFARIN
     Indication: Phlebitis
     Route: 048

REACTIONS (5)
  - COVID-19 [Recovered/Resolved]
  - COVID-19 pneumonia [Recovered/Resolved]
  - Contusion [Not Recovered/Not Resolved]
  - Fall [Unknown]
  - Pain in extremity [Not Recovered/Not Resolved]

NARRATIVE: CASE EVENT DATE: 20210101
